FAERS Safety Report 13457234 (Version 1)
Quarter: 2017Q2

REPORT INFORMATION
  Report Type: Spontaneous
  Country: US (occurrence: US)
  Receive Date: 20170419
  Receipt Date: 20170419
  Transmission Date: 20170830
  Serious: No
  Sender: FDA-Public Use
  Company Number: PHEH2017US011327

PATIENT
  Age: 53 Year
  Sex: Female

DRUGS (1)
  1. PROMACTA [Suspect]
     Active Substance: ELTROMBOPAG OLAMINE
     Indication: STEM CELL TRANSPLANT
     Dosage: 125 MG, QD
     Route: 048
     Dates: start: 20161201

REACTIONS (3)
  - Headache [Unknown]
  - Gastrointestinal disorder [Unknown]
  - Product use in unapproved indication [Unknown]

NARRATIVE: CASE EVENT DATE: 20170401
